FAERS Safety Report 6505657-7 (Version None)
Quarter: 2009Q4

REPORT INFORMATION
  Report Type: 
  Country: None (occurrence: None)
  Receive Date: 20091217
  Receipt Date: 20091217
  Transmission Date: 20100525
  Serious: Yes (Other)
  Sender: FDA-Public Use
  Company Number: None

PATIENT
  Age: 76 Year
  Sex: Male
  Weight: 124.7392 kg

DRUGS (1)
  1. SCHIFF MOVE FREE 1500 MG CHONDROITIN SCHIFF [Suspect]
     Indication: ARTHRITIS
     Dosage: 3 BID BUCCAL
     Route: 002
     Dates: start: 20090901, end: 20090907

REACTIONS (1)
  - HERPES ZOSTER [None]
